FAERS Safety Report 9865156 (Version 1)
Quarter: 2014Q1

REPORT INFORMATION
  Report Type: Spontaneous
  Country: US (occurrence: US)
  Receive Date: 20140203
  Receipt Date: 20140203
  Transmission Date: 20141002
  Serious: No
  Sender: FDA-Public Use
  Company Number: US-ALLERGAN-1303277US

PATIENT
  Age: 70 Year
  Sex: Female

DRUGS (6)
  1. RESTASIS [Suspect]
     Indication: DRY EYE
     Dosage: 2 GTT, BID
     Route: 047
  2. HYDROCHLOROTHIAZIDE [Concomitant]
     Indication: DIURETIC THERAPY
     Dosage: UNK
  3. POTASSIUM [Concomitant]
     Indication: MINERAL SUPPLEMENTATION
     Dosage: UNK
  4. MELOXICAM [Concomitant]
     Indication: ARTHRITIS
     Dosage: UNK
  5. VITAMIN C                          /00008001/ [Concomitant]
     Indication: SUPPLEMENTATION THERAPY
     Dosage: UNK
  6. FLAX SEED [Concomitant]
     Indication: NUTRITIONAL SUPPLEMENTATION
     Dosage: UNK

REACTIONS (3)
  - Foreign body sensation in eyes [Recovering/Resolving]
  - Photophobia [Recovering/Resolving]
  - Eye pain [Unknown]
